FAERS Safety Report 15567853 (Version 1)
Quarter: 2018Q4

REPORT INFORMATION
  Report Type: Spontaneous
  Country: JP (occurrence: JP)
  Receive Date: 20181030
  Receipt Date: 20181030
  Transmission Date: 20190205
  Serious: Yes (Death)
  Sender: FDA-Public Use
  Company Number: PHJP2018JP016888

PATIENT

DRUGS (2)
  1. JADENU [Suspect]
     Active Substance: DEFERASIROX
     Dosage: 360 MG, QOD
     Route: 048
  2. JADENU [Suspect]
     Active Substance: DEFERASIROX
     Indication: IRON OVERLOAD
     Dosage: 360 MG, QD
     Route: 048
     Dates: start: 20180907

REACTIONS (2)
  - Condition aggravated [Fatal]
  - Blood creatinine increased [Recovered/Resolved]

NARRATIVE: CASE EVENT DATE: 20180921
